FAERS Safety Report 6186926-X (Version None)
Quarter: 2009Q2

REPORT INFORMATION
  Report Type: 
  Country: None (occurrence: None)
  Receive Date: 20090508
  Receipt Date: 20090508
  Transmission Date: 20091009
  Serious: Yes (Other)
  Sender: FDA-Public Use
  Company Number: None

PATIENT
  Sex: Female
  Weight: 56.246 kg

DRUGS (1)
  1. MIRENA [Suspect]
     Indication: CONTRACEPTION
     Dates: start: 20081230, end: 20090505

REACTIONS (7)
  - ALOPECIA [None]
  - DEPRESSION [None]
  - DIZZINESS [None]
  - HAEMORRHAGE [None]
  - HEART RATE INCREASED [None]
  - THYROID DISORDER [None]
  - TREMOR [None]
